FAERS Safety Report 8138058-9 (Version None)
Quarter: 2012Q1

REPORT INFORMATION
  Report Type: 
  Country: None (occurrence: None)
  Receive Date: 20120215
  Receipt Date: 20120209
  Transmission Date: 20120608
  Serious: Yes (Death)
  Sender: FDA-Public Use
  Company Number: DE-GENZYME-CLOF-1002044

PATIENT
  Age: 73 Year
  Sex: Male
  Weight: 87.2 kg

DRUGS (5)
  1. EVOLTRA [Suspect]
     Dosage: 30 MG/M2, QD X 4 (DAYS 23-26)
     Route: 065
     Dates: end: 20120131
  2. ATROVENT [Concomitant]
     Indication: PRODUCT USED FOR UNKNOWN INDICATION
     Dosage: 1 DF, QID
     Route: 055
  3. CYTARABINE [Suspect]
     Indication: ACUTE MYELOID LEUKAEMIA
     Dosage: 1000 MG/M2, QD (DAYS 1-4)
     Route: 042
     Dates: start: 20120105, end: 20120109
  4. EVOLTRA [Suspect]
     Indication: ACUTE MYELOID LEUKAEMIA
     Dosage: 30 MG/M2, QD X 4 (DAYS 1-4)
     Route: 065
     Dates: start: 20120105, end: 20120109
  5. ALBUTEROL SULFATE [Concomitant]
     Indication: PRODUCT USED FOR UNKNOWN INDICATION
     Dosage: 1 DF, QID
     Route: 055

REACTIONS (3)
  - INFECTION [None]
  - SEPTIC SHOCK [None]
  - RENAL FAILURE [None]
